FAERS Safety Report 21543717 (Version 2)
Quarter: 2022Q4

REPORT INFORMATION
  Report Type: Spontaneous
  Country: US (occurrence: US)
  Receive Date: 20221102
  Receipt Date: 20221107
  Transmission Date: 20230112
  Serious: Yes (Other)
  Sender: FDA-Public Use
  Company Number: US-SUNOVION-2019SUN003840

PATIENT
  Age: 61 Year
  Sex: Female
  Weight: 49.887 kg

DRUGS (6)
  1. APTIOM [Suspect]
     Active Substance: ESLICARBAZEPINE ACETATE
     Indication: Epilepsy
     Dosage: 400 MG, BID
     Route: 048
  2. APTIOM [Suspect]
     Active Substance: ESLICARBAZEPINE ACETATE
     Dosage: 600 MG, QD (TAKES 200 MG AND 400 MG)
     Route: 048
  3. APTIOM [Suspect]
     Active Substance: ESLICARBAZEPINE ACETATE
     Dosage: 200 MG, TID
     Route: 048
     Dates: start: 202109
  4. APTIOM [Suspect]
     Active Substance: ESLICARBAZEPINE ACETATE
     Dosage: 600 MG (200 MG IN THE MORNING AND 400 MG AT NIGHT)
     Route: 048
  5. APTIOM [Suspect]
     Active Substance: ESLICARBAZEPINE ACETATE
     Dosage: 400 MG (200MG MORNING AND 200MG AT NIGHT HALF OF 400MG)
     Route: 048
     Dates: start: 20221006
  6. APTIOM [Suspect]
     Active Substance: ESLICARBAZEPINE ACETATE
     Dosage: 600 MG (200MG IN MORNING AND 400MG AT NIGHT (2-200MG))
     Route: 048

REACTIONS (8)
  - Seizure [Unknown]
  - COVID-19 [Unknown]
  - Fatigue [Unknown]
  - Asthenia [Unknown]
  - Wrong technique in product usage process [Unknown]
  - Intentional underdose [Unknown]
  - Inappropriate schedule of product administration [Unknown]
  - Off label use [Unknown]

NARRATIVE: CASE EVENT DATE: 20220820
